FAERS Safety Report 6701029-0 (Version None)
Quarter: 2010Q2

REPORT INFORMATION
  Report Type: 
  Country: None (occurrence: None)
  Receive Date: 20100428
  Receipt Date: 20100415
  Transmission Date: 20101027
  Serious: Yes (Other)
  Sender: FDA-Public Use
  Company Number: US-ELI_LILLY_AND_COMPANY-US201004005418

PATIENT
  Sex: Female

DRUGS (3)
  1. CYMBALTA [Suspect]
     Indication: MAJOR DEPRESSION
     Dosage: 60 MG, UNK
  2. ZYPREXA [Suspect]
     Indication: DEPRESSION
     Dosage: 20 MG, UNK
     Dates: start: 20090801
  3. WELLBUTRIN [Concomitant]

REACTIONS (5)
  - DEPRESSION [None]
  - FOOD CRAVING [None]
  - OFF LABEL USE [None]
  - VAGAL NERVE STIMULATOR IMPLANTATION [None]
  - WEIGHT INCREASED [None]
